FAERS Safety Report 5420713-2 (Version None)
Quarter: 2007Q3

REPORT INFORMATION
  Report Type: 
  Country: None (occurrence: None)
  Receive Date: 20070816
  Receipt Date: 20070621
  Transmission Date: 20080115
  Serious: No
  Sender: FDA-Public Use
  Company Number: US020342

PATIENT
  Age: 58 Year
  Sex: Female
  Weight: 90 kg

DRUGS (13)
  1. MODIODAL [Suspect]
     Indication: SLEEP APNOEA SYNDROME
     Dosage: 100 MG QD ORAL
     Route: 048
     Dates: start: 20050415
  2. MONOCEDOCARD [Concomitant]
  3. SELOKEEN /00376902/ [Concomitant]
  4. BURINEX [Concomitant]
  5. LEVOTHYROXINE SODIUM [Concomitant]
  6. SINTROM [Concomitant]
  7. PREDNISOLONE [Concomitant]
  8. LOSEC /00661201/ [Concomitant]
  9. ATACAND [Concomitant]
  10. EZETIMIBE [Concomitant]
  11. LIPITOR [Concomitant]
  12. CALCICHEW /00108001/ [Concomitant]
  13. ACTONEL [Concomitant]

REACTIONS (3)
  - ALVEOLITIS [None]
  - NEPHRITIS INTERSTITIAL [None]
  - SARCOIDOSIS [None]
